FAERS Safety Report 17430611 (Version 2)
Quarter: 2020Q1

REPORT INFORMATION
  Report Type: Spontaneous
  Country: CH (occurrence: CH)
  Receive Date: 20200218
  Receipt Date: 20200323
  Transmission Date: 20200409
  Serious: Yes (Other)
  Sender: FDA-Public Use
  Company Number: CH-PFIZER INC-2020071149

PATIENT
  Age: 71 Year
  Sex: Male
  Weight: 75 kg

DRUGS (2)
  1. DOXYCYCLIN MEPHA [Suspect]
     Active Substance: DOXYCYCLINE
     Indication: CARDIAC AMYLOIDOSIS
     Dosage: UNK
     Dates: start: 201601, end: 201805
  2. EGCG [Suspect]
     Active Substance: EPIGALLOCATECHIN GALLATE
     Indication: CARDIAC AMYLOIDOSIS
     Dosage: UNK

REACTIONS (2)
  - Disease progression [Unknown]
  - Hepatic enzyme increased [Unknown]

NARRATIVE: CASE EVENT DATE: 201805
